FAERS Safety Report 23017596 (Version 5)
Quarter: 2024Q2

REPORT INFORMATION
  Report Type: Report from Study
  Country: GB (occurrence: GB)
  Receive Date: 20231003
  Receipt Date: 20240518
  Transmission Date: 20240716
  Serious: Yes (Other)
  Sender: FDA-Public Use
  Company Number: GB-CELLTRION INC.-2023GB018801

PATIENT

DRUGS (20)
  1. BEVACIZUMAB [Suspect]
     Active Substance: BEVACIZUMAB
     Indication: Hepatocellular carcinoma
     Dosage: 1100 MG
     Route: 065
     Dates: start: 20221222
  2. ATEZOLIZUMAB [Suspect]
     Active Substance: ATEZOLIZUMAB
     Indication: Hepatocellular carcinoma
     Dosage: 1200 MG
     Route: 041
     Dates: start: 20221222
  3. AMITRIPTYLINE [Concomitant]
     Active Substance: AMITRIPTYLINE
     Dosage: EVERY 1 DAY
     Dates: start: 20211208
  4. AMITRIPTYLINE [Concomitant]
     Active Substance: AMITRIPTYLINE
     Dosage: UNK
     Dates: start: 20220822
  5. AMLODIPINE [Concomitant]
     Active Substance: AMLODIPINE BESYLATE
     Dosage: EVERY 1 DAY
     Dates: start: 20230223
  6. ATORVASTATIN [Concomitant]
     Active Substance: ATORVASTATIN
     Dosage: 1 DAY
     Dates: start: 20220222
  7. AZITHROMYCIN [Concomitant]
     Active Substance: AZITHROMYCIN
     Dosage: EVERY 0.5 DAY
     Dates: start: 20211208
  8. AZITHROMYCIN [Concomitant]
     Active Substance: AZITHROMYCIN
     Dosage: EVERY 0.5 DAY
     Dates: start: 20220628
  9. CARVEDILOL [Concomitant]
     Active Substance: CARVEDILOL
     Dosage: UNK, BID
     Dates: start: 20221207
  10. CETIRIZINE [Concomitant]
     Active Substance: CETIRIZINE HYDROCHLORIDE
     Dosage: EVERY 1 DAY
     Dates: start: 20230112
  11. LANSOPRAZOLE [Concomitant]
     Active Substance: LANSOPRAZOLE
     Dosage: EVERY 1 DAY
     Dates: start: 20200224
  12. LOPERAMIDE [Concomitant]
     Active Substance: LOPERAMIDE
     Dosage: UNK
     Dates: start: 20220622
  13. NITROFURANTOIN [Concomitant]
     Active Substance: NITROFURANTOIN
     Dosage: EVERY 0.5 DAY
     Dates: start: 20230823, end: 20230825
  14. NITROFURANTOIN [Concomitant]
     Active Substance: NITROFURANTOIN
     Dosage: 100 MG EVERY 0.5 DAY
     Dates: start: 20230829, end: 20230905
  15. ORAMORPH SR SUSTAINED RELEASE [Concomitant]
     Active Substance: MORPHINE SULFATE
     Dosage: UNK
     Dates: start: 20220822
  16. ACETAMINOPHEN [Concomitant]
     Active Substance: ACETAMINOPHEN
     Dosage: UNK
     Dates: start: 20221021
  17. ALBUTEROL [Concomitant]
     Active Substance: ALBUTEROL
     Dosage: (1 PUFF)
     Dates: start: 20210301
  18. FRESUBIN ENERGY [CARBOHYDRATES NOS;FATS NOS;MINERALS NOS;PROTEINS NOS; [Concomitant]
  19. SUCRALFATE [Concomitant]
     Active Substance: SUCRALFATE
     Dosage: 5 ML
     Dates: start: 20231218, end: 20231227
  20. SUCRALFATE [Concomitant]
     Active Substance: SUCRALFATE
     Dosage: 4 TIMES IN A DAY
     Dates: start: 20240208

REACTIONS (2)
  - Neuropathy peripheral [Not Recovered/Not Resolved]
  - Intentional product use issue [Unknown]

NARRATIVE: CASE EVENT DATE: 20230816
